FAERS Safety Report 24252409 (Version 1)
Quarter: 2024Q3

REPORT INFORMATION
  Report Type: Spontaneous
  Country: US (occurrence: US)
  Receive Date: 20240827
  Receipt Date: 20240827
  Transmission Date: 20241017
  Serious: No
  Sender: AMNEAL
  Company Number: US-AMNEAL PHARMACEUTICALS-2023-AMRX-02802

PATIENT
  Sex: Male

DRUGS (1)
  1. GUAIFENESIN [Suspect]
     Active Substance: GUAIFENESIN
     Indication: Increased viscosity of upper respiratory secretion
     Dosage: 600 MG
     Route: 048
     Dates: start: 2023, end: 2023

REACTIONS (1)
  - Urticaria [Recovered/Resolved]
